FAERS Safety Report 5513883-9 (Version None)
Quarter: 2007Q4

REPORT INFORMATION
  Report Type: 
  Country: None (occurrence: None)
  Receive Date: 20071113
  Receipt Date: 20071102
  Transmission Date: 20080405
  Serious: Yes (Other)
  Sender: FDA-Public Use
  Company Number: US-BAYER-200713216BCC

PATIENT
  Age: 92 Year
  Sex: Female
  Weight: 41 kg

DRUGS (3)
  1. PHILLIPS LAXATIVE CAPLETS [Suspect]
     Indication: CONSTIPATION
     Dosage: TOTAL DAILY DOSE: 1000 MG  UNIT DOSE: 500 MG
     Route: 048
     Dates: start: 20070919
  2. LEVOXYL [Concomitant]
  3. NITROFURANTOIN [Concomitant]

REACTIONS (1)
  - HAEMATOCHEZIA [None]
